FAERS Safety Report 23407980 (Version 1)
Quarter: 2024Q1

REPORT INFORMATION
  Report Type: Report from Study
  Country: CA (occurrence: CA)
  Receive Date: 20240117
  Receipt Date: 20240117
  Transmission Date: 20240409
  Serious: Yes (Death, Other)
  Sender: FDA-Public Use
  Company Number: CA-BAYER-2024A006936

PATIENT
  Age: 76 Year
  Sex: Male

DRUGS (1)
  1. EYLEA [Suspect]
     Active Substance: AFLIBERCEPT
     Indication: Retinal vein occlusion
     Dosage: SOLUTION FOR INJECTION, 40 MG/ML

REACTIONS (1)
  - Death [Fatal]

NARRATIVE: CASE EVENT DATE: 20240108
